FAERS Safety Report 9023712 (Version 1)
Quarter: 2013Q1

REPORT INFORMATION
  Report Type: Spontaneous
  Country: US (occurrence: US)
  Receive Date: 20130121
  Receipt Date: 20130121
  Transmission Date: 20140127
  Serious: Yes (Death)
  Sender: FDA-Public Use
  Company Number: US-ELI_LILLY_AND_COMPANY-US201301006077

PATIENT
  Sex: Male

DRUGS (1)
  1. GEMZAR [Suspect]
     Indication: HEPATIC CANCER
     Dosage: UNK
     Route: 042
     Dates: start: 20121112, end: 20121119

REACTIONS (3)
  - Death [Fatal]
  - Malaise [Unknown]
  - Off label use [Recovered/Resolved]
